FAERS Safety Report 7621446-4 (Version None)
Quarter: 2011Q3

REPORT INFORMATION
  Report Type: 
  Country: None (occurrence: None)
  Receive Date: 20110719
  Receipt Date: 20110509
  Transmission Date: 20111222
  Serious: No
  Sender: FDA-Public Use
  Company Number: US-BAUSCH-2011BL003015

PATIENT
  Age: 85 Year
  Sex: Female

DRUGS (2)
  1. LATANOPROST [Suspect]
     Indication: INTRAOCULAR PRESSURE TEST
     Route: 047
     Dates: start: 20110501, end: 20110501
  2. SYSTANE [Concomitant]
     Indication: DRY EYE
     Route: 047
     Dates: start: 20110301

REACTIONS (1)
  - SKIN DISCOLOURATION [None]
